FAERS Safety Report 5957410-0 (Version None)
Quarter: 2008Q4

REPORT INFORMATION
  Report Type: 
  Country: None (occurrence: None)
  Receive Date: 20081114
  Receipt Date: 20081031
  Transmission Date: 20090506
  Serious: Yes (Death)
  Sender: FDA-Public Use
  Company Number: 8039271

PATIENT
  Age: 63 Year
  Sex: Female

DRUGS (4)
  1. PREDNISOLONE [Suspect]
     Indication: OCULAR MYASTHENIA
  2. FUROSEMIDE [Suspect]
     Dates: start: 20061005, end: 20070127
  3. DISPYRAMIDE [Suspect]
     Indication: ATRIAL FIBRILLATION
     Dosage: 300 MG /D
     Dates: start: 20061005, end: 20070127
  4. CHOLINESTERASE INHIBITOR [Suspect]
     Indication: OCULAR MYASTHENIA
     Dates: end: 20070127

REACTIONS (17)
  - ATRIAL FIBRILLATION [None]
  - CARDIAC FAILURE [None]
  - CARDIOMEGALY [None]
  - CARDIOMYOPATHY [None]
  - CONDITION AGGRAVATED [None]
  - DISSEMINATED INTRAVASCULAR COAGULATION [None]
  - ELECTROCARDIOGRAM QT PROLONGED [None]
  - ENTERITIS [None]
  - HYPOKALAEMIA [None]
  - MUSCULAR WEAKNESS [None]
  - MYASTHENIA GRAVIS [None]
  - PNEUMONIA ASPIRATION [None]
  - RESPIRATORY ARREST [None]
  - RESPIRATORY FAILURE [None]
  - SEPSIS [None]
  - TACHYARRHYTHMIA [None]
  - TORSADE DE POINTES [None]
